FAERS Safety Report 6906974-9 (Version None)
Quarter: 2010Q3

REPORT INFORMATION
  Report Type: 
  Country: None (occurrence: None)
  Receive Date: 20100804
  Receipt Date: 20071023
  Transmission Date: 20110219
  Serious: No
  Sender: FDA-Public Use
  Company Number: US-PFIZER INC-2007090099

PATIENT
  Sex: Female

DRUGS (3)
  1. NARDIL [Suspect]
     Indication: DEPRESSION
     Dosage: 15 MG, 4X/DAY
     Route: 048
     Dates: end: 20100225
  2. CHANTIX [Interacting]
  3. LAMICTAL [Concomitant]
     Dosage: UNK

REACTIONS (1)
  - DRUG INTERACTION [None]
